FAERS Safety Report 8553505-6 (Version None)
Quarter: 2012Q3

REPORT INFORMATION
  Report Type: 
  Country: None (occurrence: None)
  Receive Date: 20120731
  Receipt Date: 20120725
  Transmission Date: 20120928
  Serious: Yes (Other)
  Sender: FDA-Public Use
  Company Number: AU-PFIZER INC-2012165324

PATIENT
  Age: 37 Year
  Sex: Female
  Weight: 62 kg

DRUGS (5)
  1. OSTEVIT D [Concomitant]
     Indication: VITAMIN D DEFICIENCY
     Dosage: 1000 IU, DAILY
     Route: 048
     Dates: start: 20120118
  2. NEO-B12 [Concomitant]
     Indication: VITAMIN B12 DEFICIENCY
     Dosage: 1 MG, MONTHLY
     Route: 030
  3. BUDESONIDE EFORMOTEROL FUMARATE DIHYDRATE [Concomitant]
     Indication: ASTHMA
     Dosage: 200/6, 1 PUFF 2X/DAY AND AS NEEDED
     Route: 055
     Dates: start: 20120424
  4. EFFEXOR XR [Suspect]
     Indication: DEPRESSION
     Dosage: 75 MG, DAILY
     Route: 048
     Dates: start: 20100101
  5. EFFEXOR XR [Suspect]
     Dosage: 37.5 MG, 1X/DAY
     Route: 048
     Dates: start: 20120424, end: 20120618

REACTIONS (9)
  - MEMORY IMPAIRMENT [None]
  - HEADACHE [None]
  - NAUSEA [None]
  - TEARFULNESS [None]
  - DRUG WITHDRAWAL SYNDROME [None]
  - FEELING ABNORMAL [None]
  - ANXIETY [None]
  - DIZZINESS [None]
  - DISTURBANCE IN ATTENTION [None]
